FAERS Safety Report 16025157 (Version 6)
Quarter: 2020Q1

REPORT INFORMATION
  Report Type: Spontaneous
  Country: US (occurrence: US)
  Receive Date: 20190301
  Receipt Date: 20200130
  Transmission Date: 20200409
  Serious: Yes (Other)
  Sender: FDA-Public Use
  Company Number: US-SA-2019SA057340

PATIENT
  Age: 68 Year
  Sex: Male

DRUGS (2)
  1. DUPIXENT [Suspect]
     Active Substance: DUPILUMAB
     Indication: DERMATITIS ATOPIC
     Dosage: 600 MG, 1X
     Route: 058
     Dates: start: 201901, end: 201901
  2. DUPIXENT [Suspect]
     Active Substance: DUPILUMAB
     Dosage: 300 MG, QOW
     Route: 058
     Dates: start: 2019, end: 202001

REACTIONS (11)
  - Upper-airway cough syndrome [Unknown]
  - Arthropathy [Recovering/Resolving]
  - Sinus congestion [Unknown]
  - Pulmonary congestion [Unknown]
  - Abdominal discomfort [Unknown]
  - Bronchitis [Unknown]
  - Chills [Unknown]
  - Eye pruritus [Unknown]
  - Pyrexia [Unknown]
  - Injection site reaction [Unknown]
  - Bronchitis chronic [Recovered/Resolved]
